FAERS Safety Report 25731898 (Version 2)
Quarter: 2025Q3

REPORT INFORMATION
  Report Type: Spontaneous
  Country: CN (occurrence: CN)
  Receive Date: 20250827
  Receipt Date: 20250930
  Transmission Date: 20251020
  Serious: No
  Sender: ARGENX BVBA
  Company Number: CN-ARGENX-2025-ARGX-CN011217

PATIENT

DRUGS (3)
  1. EFGARTIGIMOD ALFA [Suspect]
     Active Substance: EFGARTIGIMOD ALFA
     Indication: Myasthenia gravis
     Dosage: 10 MG/KG, 1/WEEK
     Route: 042
     Dates: start: 202402, end: 202405
  2. PREDNISONE [Concomitant]
     Active Substance: PREDNISONE
     Indication: Myasthenia gravis
     Dosage: 30-60 MG, DAILY
     Route: 065
     Dates: start: 202401, end: 202408
  3. PYRIDOSTIGMINE [Concomitant]
     Active Substance: PYRIDOSTIGMINE
     Indication: Myasthenia gravis
     Dosage: 60-120 MG, TID
     Route: 065
     Dates: start: 202401, end: 202408

REACTIONS (1)
  - No adverse event [Unknown]
